FAERS Safety Report 8929279 (Version 1)
Quarter: 2012Q4

REPORT INFORMATION
  Report Type: Spontaneous
  Country: US (occurrence: None)
  Receive Date: 20121126
  Receipt Date: 20121126
  Transmission Date: 20130627
  Serious: No
  Sender: FDA-Public Use
  Company Number: None

PATIENT
  Sex: Male
  Weight: 77.11 kg

DRUGS (1)
  1. VERAPAMIL HCL [Suspect]
     Indication: BLOOD PRESSURE
     Dosage: 180 mg 1 TAB BID PO
     Route: 048
     Dates: start: 20120805, end: 20120916

REACTIONS (2)
  - Oedema peripheral [None]
  - Oedema peripheral [None]
